FAERS Safety Report 17769702 (Version 2)
Quarter: 2020Q2

REPORT INFORMATION
  Report Type: Spontaneous
  Country: US (occurrence: US)
  Receive Date: 20200512
  Receipt Date: 20200513
  Transmission Date: 20200714
  Serious: No
  Sender: FDA-Public Use
  Company Number: US-PFIZER INC-2020184497

PATIENT
  Age: 87 Year
  Sex: Male
  Weight: 111.13 kg

DRUGS (3)
  1. TORSEMIDE. [Interacting]
     Active Substance: TORSEMIDE
     Indication: FLUID RETENTION
     Dosage: 60 MG, 1X/DAY
     Route: 048
     Dates: start: 2019
  2. ALLOPURINOL. [Concomitant]
     Active Substance: ALLOPURINOL
     Dosage: 100 MG, 1X/DAY [4-5 YEARS]
     Route: 048
  3. VYNDAQEL [Suspect]
     Active Substance: TAFAMIDIS MEGLUMINE
     Indication: CARDIAC AMYLOIDOSIS
     Dosage: 80 MG, 1X/DAY
     Route: 048
     Dates: start: 2019

REACTIONS (3)
  - Drug interaction [Unknown]
  - Abdominal distension [Unknown]
  - Oliguria [Unknown]
